FAERS Safety Report 15374568 (Version 1)
Quarter: 2018Q3

REPORT INFORMATION
  Report Type: Spontaneous
  Country: US (occurrence: US)
  Receive Date: 20180906
  Receipt Date: 20180906
  Transmission Date: 20181010
  Serious: Yes (Disabling, Other)
  Sender: FDA-Public Use
  Company Number: None

PATIENT
  Age: 45 Year
  Sex: Female
  Weight: 75.6 kg

DRUGS (9)
  1. LATUDA [Concomitant]
     Active Substance: LURASIDONE HYDROCHLORIDE
  2. FISH OIL [Concomitant]
     Active Substance: FISH OIL
  3. FOCUS FACTOR [Concomitant]
  4. KERATIN [Concomitant]
     Active Substance: KERATIN
  5. PREVAGEN [Concomitant]
     Active Substance: DIETARY SUPPLEMENT
  6. ACYCLOVIR. [Concomitant]
     Active Substance: ACYCLOVIR
  7. TOPIRIMATE [Concomitant]
     Active Substance: TOPIRAMATE
  8. ZOLPIDEM ER 12.5MG TABLETS [Suspect]
     Active Substance: ZOLPIDEM TARTRATE
     Indication: INSOMNIA
     Dosage: ?          QUANTITY:30 TABLET(S);?
     Route: 048
     Dates: start: 20180816, end: 20180830
  9. LUCATE [Concomitant]

REACTIONS (4)
  - Insomnia [None]
  - Drug ineffective [None]
  - Bipolar I disorder [None]
  - Product substitution issue [None]

NARRATIVE: CASE EVENT DATE: 20180816
